FAERS Safety Report 7669205-0 (Version None)
Quarter: 2011Q3

REPORT INFORMATION
  Report Type: 
  Country: None (occurrence: None)
  Receive Date: 20110808
  Receipt Date: 20110728
  Transmission Date: 20111222
  Serious: Yes (Other)
  Sender: FDA-Public Use
  Company Number: PHFR2011GB01205

PATIENT
  Sex: Female

DRUGS (2)
  1. CLOZAPINE [Suspect]
     Dosage: 500 MG, ONCE/SINGLE
     Route: 048
     Dates: start: 20030429
  2. VALPROIC ACID [Suspect]
     Route: 048

REACTIONS (4)
  - RENAL FAILURE CHRONIC [None]
  - EPILEPSY [None]
  - HAEMOGLOBIN DECREASED [None]
  - CHRONIC OBSTRUCTIVE PULMONARY DISEASE [None]
